FAERS Safety Report 17543502 (Version 3)
Quarter: 2020Q2

REPORT INFORMATION
  Report Type: Spontaneous
  Country: US (occurrence: US)
  Receive Date: 20200316
  Receipt Date: 20200406
  Transmission Date: 20200713
  Serious: Yes (Hospitalization)
  Sender: FDA-Public Use
  Company Number: US-009507513-2003USA005062

PATIENT
  Sex: Female

DRUGS (5)
  1. INTRON A [Suspect]
     Active Substance: INTERFERON ALFA-2B
     Dosage: 10MM UNIT SDV, INJECT 3 MILLION UNITS, TIW(MONDAY, WEDNESDAY AND FRIDAY)
     Route: 058
  2. STERILE DILUENT (WATER) [Suspect]
     Active Substance: WATER
     Indication: HAEMANGIOMA
     Dosage: UNK, TIW(MONDAY, WEDNESDAY AND FRIDAY)
     Route: 058
  3. INTRON A [Suspect]
     Active Substance: INTERFERON ALFA-2B
     Indication: HAEMANGIOMA
     Dosage: 10MM UNIT SDV, INJECT 3 MILLION UNITS, TIW(MONDAY, WEDNESDAY AND FRIDAY)
     Route: 058
  4. PREDNISONE. [Concomitant]
     Active Substance: PREDNISONE
     Dosage: UNK
     Route: 048
  5. ORENITRAM [Concomitant]
     Active Substance: TREPROSTINIL
     Dosage: UNK
     Route: 048

REACTIONS (2)
  - Lung transplant [Unknown]
  - Product use in unapproved indication [Unknown]

NARRATIVE: CASE EVENT DATE: 2020
